FAERS Safety Report 7732213-5 (Version None)
Quarter: 2011Q3

REPORT INFORMATION
  Report Type: 
  Country: None (occurrence: None)
  Receive Date: 20110906
  Receipt Date: 20110829
  Transmission Date: 20111222
  Serious: Yes (Hospitalization, Other)
  Sender: FDA-Public Use
  Company Number: US-BAYER-201038013NA

PATIENT
  Age: 41 Year
  Sex: Female
  Weight: 57.596 kg

DRUGS (4)
  1. YAZ [Suspect]
     Indication: ACNE
     Dosage: UNK UNK, UNK
     Route: 048
     Dates: start: 20080201, end: 20081001
  2. DIFLUCAN [Concomitant]
     Dosage: 150 MG, UNK
     Route: 048
     Dates: start: 20080313
  3. ASCORBIC ACID [Concomitant]
  4. CELEBREX [Concomitant]

REACTIONS (17)
  - BLINDNESS TRANSIENT [None]
  - PRURITUS [None]
  - SUPERIOR SAGITTAL SINUS THROMBOSIS [None]
  - BRUXISM [None]
  - DEPRESSION [None]
  - RASH GENERALISED [None]
  - PANIC ATTACK [None]
  - SNEEZING [None]
  - HEADACHE [None]
  - STRESS [None]
  - PAIN [None]
  - HAEMORRHOIDS [None]
  - ABNORMAL DREAMS [None]
  - POST-TRAUMATIC STRESS DISORDER [None]
  - DEAFNESS TRANSITORY [None]
  - ANXIETY [None]
  - NEUROLOGICAL SYMPTOM [None]
